FAERS Safety Report 22160433 (Version 1)
Quarter: 2023Q1

REPORT INFORMATION
  Report Type: Report from Study
  Country: GB (occurrence: GB)
  Receive Date: 20230331
  Receipt Date: 20230331
  Transmission Date: 20230418
  Serious: Yes (Death, Hospitalization, Other)
  Sender: FDA-Public Use
  Company Number: GB-JNJFOC-20230367896

PATIENT

DRUGS (2)
  1. MACITENTAN [Suspect]
     Active Substance: MACITENTAN
     Indication: Pulmonary hypertension
     Route: 048
  2. MACITENTAN [Suspect]
     Active Substance: MACITENTAN
     Indication: Right-to-left cardiac shunt

REACTIONS (18)
  - Respiratory failure [Fatal]
  - Right ventricular failure [Unknown]
  - Pneumonia [Unknown]
  - Acute kidney injury [Unknown]
  - Atrial fibrillation [Unknown]
  - Endocarditis [Unknown]
  - Septic shock [Unknown]
  - Transient ischaemic attack [Unknown]
  - Anaemia [Unknown]
  - Dizziness [Unknown]
  - Oedema [Unknown]
  - Hypotension [Unknown]
  - Headache [Unknown]
  - Upper respiratory tract infection [Unknown]
  - Bronchitis [Unknown]
  - Oedema peripheral [Unknown]
  - Fatigue [Unknown]
  - Erythema [Unknown]
